FAERS Safety Report 9126542 (Version 1)
Quarter: 2013Q1

REPORT INFORMATION
  Report Type: Spontaneous
  Country: US (occurrence: US)
  Receive Date: 20130117
  Receipt Date: 20130117
  Transmission Date: 20140127
  Serious: Yes (Hospitalization)
  Sender: FDA-Public Use
  Company Number: US-BAYER-2013-004512

PATIENT
  Age: 30 Year
  Sex: Female
  Weight: 104 kg

DRUGS (7)
  1. YAZ [Suspect]
     Indication: CONTRACEPTION
  2. YAZ [Suspect]
     Indication: PREMENSTRUAL SYNDROME
  3. YAZ [Suspect]
     Indication: PREMENSTRUAL DYSPHORIC DISORDER
  4. IMITREX [Concomitant]
     Dosage: UNK UNK, PRN
     Dates: start: 20080904
  5. IBUPROFEN [Concomitant]
     Indication: BURSITIS
     Dosage: OCCASIONAL
     Dates: start: 20080904
  6. TYLENOL [Concomitant]
     Indication: BURSITIS
     Dosage: OCCASIONAL
     Dates: start: 20080904
  7. SUMATRIPTAN [Concomitant]

REACTIONS (1)
  - Pulmonary embolism [Recovered/Resolved]
